FAERS Safety Report 7108081-1 (Version None)
Quarter: 2010Q4

REPORT INFORMATION
  Report Type: 
  Country: None (occurrence: None)
  Receive Date: 20101115
  Receipt Date: 20101115
  Transmission Date: 20110411
  Serious: Yes (Other)
  Sender: FDA-Public Use
  Company Number: None

PATIENT
  Age: 62 Year
  Sex: Female
  Weight: 68.0396 kg

DRUGS (2)
  1. LYRICA [Suspect]
     Indication: POST HERPETIC NEURALGIA
     Dosage: 50 MGM 3 TIMES A DAY FOR 8D PO
     Route: 048
     Dates: start: 20101009, end: 20101010
  2. LYRICA [Suspect]
     Indication: POST HERPETIC NEURALGIA
     Dosage: 50 MGM 3 TIMES A DAY FOR 8D PO
     Route: 048
     Dates: start: 20101012, end: 20101022

REACTIONS (5)
  - BALANCE DISORDER [None]
  - DEHYDRATION [None]
  - NAUSEA [None]
  - OEDEMA PERIPHERAL [None]
  - VOMITING [None]
